FAERS Safety Report 26056637 (Version 1)
Quarter: 2025Q4

REPORT INFORMATION
  Report Type: Spontaneous
  Country: US (occurrence: US)
  Receive Date: 20251118
  Receipt Date: 20251118
  Transmission Date: 20260119
  Serious: No
  Sender: AMNEAL
  Company Number: US-AMNEAL PHARMACEUTICALS-2025-AMRX-00211

PATIENT

DRUGS (1)
  1. ISOTRETINOIN [Suspect]
     Active Substance: ISOTRETINOIN
     Indication: Product used for unknown indication
     Dosage: UNK
     Route: 065
     Dates: start: 20231001, end: 20240101

REACTIONS (6)
  - Limb injury [Unknown]
  - Rhinorrhoea [Unknown]
  - Pain in extremity [Unknown]
  - Rash [Unknown]
  - Chapped lips [Unknown]
  - Acne [Unknown]
